FAERS Safety Report 10005539 (Version 2)
Quarter: 2014Q1

REPORT INFORMATION
  Report Type: Report from Study
  Country: FR (occurrence: FR)
  Receive Date: 20140313
  Receipt Date: 20140313
  Transmission Date: 20141002
  Serious: Yes (Hospitalization)
  Sender: FDA-Public Use
  Company Number: FR-ROCHE-1164866

PATIENT
  Age: 63 Year
  Sex: Female

DRUGS (18)
  1. RITUXIMAB [Suspect]
     Indication: RHEUMATOID ARTHRITIS
     Dosage: DAY 1
     Route: 065
     Dates: start: 20080505
  2. RITUXIMAB [Suspect]
     Dosage: DAY 15
     Route: 065
     Dates: start: 20080501
  3. RITUXIMAB [Suspect]
     Dosage: DAY 1
     Route: 065
     Dates: start: 20081010
  4. RITUXIMAB [Suspect]
     Dosage: DAY 15
     Route: 065
     Dates: start: 20081024
  5. RITUXIMAB [Suspect]
     Dosage: DAY 1
     Route: 065
     Dates: start: 20090918
  6. RITUXIMAB [Suspect]
     Dosage: DAY 15
     Route: 065
     Dates: start: 20091002
  7. METHOTREXATE [Concomitant]
     Route: 065
     Dates: start: 20080505
  8. METHOTREXATE [Concomitant]
     Route: 065
     Dates: start: 20080521
  9. METHOTREXATE [Concomitant]
     Route: 065
     Dates: start: 20081010
  10. METHOTREXATE [Concomitant]
     Route: 065
     Dates: start: 20081024
  11. METHOTREXATE [Concomitant]
     Route: 065
     Dates: start: 20090918
  12. METHOTREXATE [Concomitant]
     Route: 065
     Dates: start: 20091002
  13. CORTANCYL [Concomitant]
     Route: 065
     Dates: start: 20080505
  14. CORTANCYL [Concomitant]
     Route: 065
     Dates: start: 20080521
  15. CORTANCYL [Concomitant]
     Route: 065
     Dates: start: 20081010
  16. CORTANCYL [Concomitant]
     Route: 065
     Dates: start: 20081024
  17. CORTANCYL [Concomitant]
     Route: 065
     Dates: start: 20090918
  18. CORTANCYL [Concomitant]
     Route: 065
     Dates: start: 20091002

REACTIONS (7)
  - Fall [Unknown]
  - Femoral neck fracture [Recovered/Resolved]
  - Bronchopneumonia [Recovered/Resolved]
  - Localised infection [Recovered/Resolved]
  - Cardiac failure [Recovered/Resolved]
  - Erysipelas [Recovered/Resolved]
  - Pharyngitis [Recovered/Resolved]
